FAERS Safety Report 23082994 (Version 1)
Quarter: 2023Q4

REPORT INFORMATION
  Report Type: Report from Study
  Country: CA (occurrence: None)
  Receive Date: 20231019
  Receipt Date: 20231019
  Transmission Date: 20240109
  Serious: Yes (Other)
  Sender: FDA-Public Use
  Company Number: CA-PFIZER INC-2021476574

PATIENT
  Sex: Female
  Weight: 50 kg

DRUGS (25)
  1. METHOTREXATE [Suspect]
     Active Substance: METHOTREXATE
     Indication: Systemic lupus erythematosus
  2. RITUXIMAB [Suspect]
     Active Substance: RITUXIMAB
     Indication: Systemic lupus erythematosus
  3. RITUXIMAB [Suspect]
     Active Substance: RITUXIMAB
  4. RITUXIMAB [Suspect]
     Active Substance: RITUXIMAB
  5. RUXIENCE [Suspect]
     Active Substance: RITUXIMAB-PVVR
     Indication: Product used for unknown indication
  6. MYCOPHENOLATE MOFETIL [Suspect]
     Active Substance: MYCOPHENOLATE MOFETIL
     Indication: Systemic lupus erythematosus
  7. AMITRIPTYLINE [Concomitant]
     Active Substance: AMITRIPTYLINE
  8. ASPIRIN [Concomitant]
     Active Substance: ASPIRIN
  9. AZATHIOPRINE [Concomitant]
     Active Substance: AZATHIOPRINE
  10. AZATHIOPRINE [Concomitant]
     Active Substance: AZATHIOPRINE
  11. BIOTIN [Concomitant]
     Active Substance: BIOTIN
  12. ESCITALOPRAM [Concomitant]
     Active Substance: ESCITALOPRAM OXALATE
  13. HYDROXYCHLOROQUINE SULFATE [Concomitant]
     Active Substance: HYDROXYCHLOROQUINE SULFATE
  14. IRON [Concomitant]
     Active Substance: IRON
  15. LYSINE [Concomitant]
     Active Substance: LYSINE
  16. NAPROXEN [Concomitant]
     Active Substance: NAPROXEN
  17. DOCONEXENT\ICOSAPENT [Concomitant]
     Active Substance: DOCONEXENT\ICOSAPENT
  18. OMEPRAZOLE [Concomitant]
     Active Substance: OMEPRAZOLE
  19. PREDNISONE [Concomitant]
     Active Substance: PREDNISONE
  20. VITAMIN D3 [Concomitant]
     Active Substance: CHOLECALCIFEROL
  21. VITAMINS NOS [Concomitant]
     Active Substance: VITAMINS
  22. ZOPICLONE [Concomitant]
     Active Substance: ZOPICLONE
  23. ASPIRIN [Concomitant]
     Active Substance: ASPIRIN
  24. CELEBREX [Concomitant]
     Active Substance: CELECOXIB
  25. LYSINE [Concomitant]
     Active Substance: LYSINE

REACTIONS (13)
  - Drug ineffective [Unknown]
  - Alopecia [Unknown]
  - Rash [Unknown]
  - Cerebral disorder [Unknown]
  - Muscle atrophy [Unknown]
  - Pigmentation disorder [Unknown]
  - Asthenia [Unknown]
  - Dyspnoea [Unknown]
  - Heart rate increased [Unknown]
  - Inflammation [Unknown]
  - Livedo reticularis [Unknown]
  - Loss of personal independence in daily activities [Unknown]
  - Product use in unapproved indication [Unknown]
